FAERS Safety Report 13059544 (Version 5)
Quarter: 2019Q1

REPORT INFORMATION
  Report Type: Spontaneous
  Country: SE (occurrence: SE)
  Receive Date: 20161223
  Receipt Date: 20190115
  Transmission Date: 20190417
  Serious: Yes (Hospitalization, Other)
  Sender: FDA-Public Use
  Company Number: SE-ELI_LILLY_AND_COMPANY-SE201612006005

PATIENT
  Age: 45 Year
  Sex: Male

DRUGS (2)
  1. ZYPADHERA [Suspect]
     Active Substance: OLANZAPINE PAMOATE
     Indication: SCHIZOPHRENIA
     Dosage: 300 MG, 2/M
     Route: 030
     Dates: start: 20150512
  2. PARGITAN [Concomitant]
     Active Substance: TRIHEXYPHENIDYL HYDROCHLORIDE
     Indication: PRODUCT USED FOR UNKNOWN INDICATION
     Dosage: UNK, UNKNOWN
     Route: 065
     Dates: start: 20160513

REACTIONS (9)
  - Confusional state [Recovered/Resolved]
  - Post-injection delirium sedation syndrome [Recovered/Resolved]
  - Depressed mood [Recovered/Resolved]
  - Dysarthria [Recovered/Resolved]
  - Akathisia [Recovered/Resolved]
  - Restlessness [Recovered/Resolved]
  - Discomfort [Recovered/Resolved]
  - Somnolence [Recovered/Resolved]
  - Muscle twitching [Recovered/Resolved]

NARRATIVE: CASE EVENT DATE: 20161208
